FAERS Safety Report 9364084 (Version 1)
Quarter: 2013Q2

REPORT INFORMATION
  Report Type: Spontaneous
  Country: IN (occurrence: None)
  Receive Date: 20130618
  Receipt Date: 20130618
  Transmission Date: 20140414
  Serious: Yes (Hospitalization)
  Sender: FDA-Public Use
  Company Number: SYM-2013-04746

PATIENT
  Age: 62 Year
  Sex: Male

DRUGS (6)
  1. BUPROPION HYDROCHLORIDE [Suspect]
     Indication: SMOKING CESSATION THERAPY
  2. LOSARTAN POTASSIUM [Concomitant]
  3. HALOPERIDOL [Concomitant]
  4. GLICLAZIDE [Concomitant]
  5. METFORMIN [Concomitant]
  6. S-AMLODIPINE [Concomitant]

REACTIONS (8)
  - Acute psychosis [None]
  - Agitation [None]
  - Aggression [None]
  - Persecutory delusion [None]
  - Physical abuse [None]
  - Verbal abuse [None]
  - Delusion [None]
  - Suspiciousness [None]
